FAERS Safety Report 5057156-X (Version None)
Quarter: 2006Q3

REPORT INFORMATION
  Report Type: 
  Country: None (occurrence: None)
  Receive Date: 20060721
  Receipt Date: 20060712
  Transmission Date: 20061208
  Serious: Yes (Other)
  Sender: FDA-Public Use
  Company Number: PHHO2006RU11297

PATIENT
  Age: 59 Year
  Sex: Female
  Weight: 64 kg

DRUGS (2)
  1. *CGP 57148B* [Suspect]
     Indication: CHRONIC MYELOID LEUKAEMIA
     Dosage: 600MG DAILY
     Route: 048
     Dates: start: 20051205
  2. BARALGIN [Concomitant]
     Indication: ARTHRALGIA

REACTIONS (1)
  - LYMPHOMA [None]
